FAERS Safety Report 6774443-5 (Version None)
Quarter: 2010Q2

REPORT INFORMATION
  Report Type: 
  Country: None (occurrence: None)
  Receive Date: 20100520
  Receipt Date: 20090429
  Transmission Date: 20101027
  Serious: Yes (Other)
  Sender: FDA-Public Use
  Company Number: 2008056000

PATIENT
  Age: 57 Year
  Weight: 79 kg

DRUGS (11)
  1. PROVERA [Suspect]
     Indication: HORMONE REPLACEMENT THERAPY
     Dosage: ORAL
     Route: 048
     Dates: start: 19890101, end: 20030301
  2. PROVERA [Suspect]
     Indication: MENOPAUSE
     Dosage: ORAL
     Route: 048
     Dates: start: 19890101, end: 20030301
  3. PREMARIN [Suspect]
     Indication: HORMONE REPLACEMENT THERAPY
     Dates: start: 19890101, end: 20030301
  4. PREMARIN [Suspect]
     Indication: MENOPAUSE
     Dates: start: 19890101, end: 20030301
  5. PREMPRO [Suspect]
     Indication: HORMONE REPLACEMENT THERAPY
     Dates: start: 19890101, end: 20030301
  6. PREMPRO [Suspect]
     Indication: MENOPAUSE
     Dates: start: 19890101, end: 20030301
  7. LIPITOR [Concomitant]
  8. LEVOTHYROXINE ^BERLIN-CHEMIE^ (LEVOTHYROXINE SODIUM) [Concomitant]
  9. GLUCOTROL [Concomitant]
  10. ACTOS [Concomitant]
  11. GLUCOPHAGE [Concomitant]

REACTIONS (1)
  - BREAST CANCER FEMALE [None]
